FAERS Safety Report 8311341-X (Version None)
Quarter: 2012Q2

REPORT INFORMATION
  Report Type: 
  Country: None (occurrence: None)
  Receive Date: 20120425
  Receipt Date: 20120420
  Transmission Date: 20120825
  Serious: Yes (Other)
  Sender: FDA-Public Use
  Company Number: GB-GLAXOSMITHKLINE-B0797290A

PATIENT
  Age: 54 Year
  Sex: Female

DRUGS (4)
  1. TEGRETOL [Concomitant]
  2. GABAPENTIN [Concomitant]
  3. CLOBAZAM [Concomitant]
  4. POTIGA [Suspect]
     Indication: EPILEPSY
     Dosage: 500MG PER DAY
     Route: 048
     Dates: start: 20120228, end: 20120403

REACTIONS (1)
  - CONVULSION [None]
